FAERS Safety Report 13521944 (Version 3)
Quarter: 2017Q2

REPORT INFORMATION
  Report Type: Spontaneous
  Country: TH (occurrence: TH)
  Receive Date: 20170508
  Receipt Date: 20170615
  Transmission Date: 20170830
  Serious: Yes (Life-Threatening, Other)
  Sender: FDA-Public Use
  Company Number: TH-B.I. PHARMACEUTICALS,INC./RIDGEFIELD-2017-BI-024670

PATIENT
  Age: 73 Year
  Sex: Female
  Weight: 80 kg

DRUGS (9)
  1. LASIX [Concomitant]
     Active Substance: FUROSEMIDE
     Indication: CARDIAC FAILURE
     Route: 048
     Dates: start: 20170408, end: 20170428
  2. ANGIOTENSIN II RECEPTOR BLOCKERS [Concomitant]
     Indication: HYPERTENSION
     Route: 065
  3. DIAMICRON [Concomitant]
     Active Substance: GLICLAZIDE
     Indication: DIABETES MELLITUS
     Route: 048
     Dates: start: 20170408, end: 20170428
  4. PRADAXA [Suspect]
     Active Substance: DABIGATRAN ETEXILATE MESYLATE
     Indication: PULMONARY EMBOLISM
  5. PRADAXA [Suspect]
     Active Substance: DABIGATRAN ETEXILATE MESYLATE
     Indication: PULMONARY HYPERTENSION
     Route: 048
     Dates: start: 20170405, end: 20170428
  6. PRADAXA [Suspect]
     Active Substance: DABIGATRAN ETEXILATE MESYLATE
     Indication: ATRIAL FIBRILLATION
  7. GLUCOPHAGE XR [Concomitant]
     Active Substance: METFORMIN HYDROCHLORIDE
     Indication: DIABETES MELLITUS
     Route: 048
     Dates: start: 20170408, end: 20170428
  8. CARDIL (DILTIAZEM) [Concomitant]
     Indication: PULMONARY HYPERTENSION
     Route: 048
     Dates: start: 20170408, end: 20170428
  9. VIAGRA [Concomitant]
     Active Substance: SILDENAFIL CITRATE
     Indication: PULMONARY HYPERTENSION
     Route: 048
     Dates: start: 20170408, end: 20170428

REACTIONS (7)
  - Disseminated intravascular coagulation [Recovered/Resolved]
  - Upper gastrointestinal haemorrhage [Recovered/Resolved]
  - Shock [Recovered/Resolved]
  - Acute kidney injury [Recovered/Resolved]
  - Ischaemic hepatitis [Recovered/Resolved]
  - Renal impairment [Unknown]
  - Coagulopathy [Unknown]

NARRATIVE: CASE EVENT DATE: 20170426
